APPROVED DRUG PRODUCT: TACROLIMUS
Active Ingredient: TACROLIMUS
Strength: EQ 0.5MG BASE
Dosage Form/Route: CAPSULE;ORAL
Application: A206651 | Product #001 | TE Code: AB
Applicant: AJENAT PHARMACEUTICALS LLC
Approved: Nov 30, 2017 | RLD: No | RS: No | Type: RX